FAERS Safety Report 6932669-1 (Version None)
Quarter: 2010Q3

REPORT INFORMATION
  Report Type: 
  Country: None (occurrence: None)
  Receive Date: 20100817
  Receipt Date: 20100809
  Transmission Date: 20110219
  Serious: Yes (Other)
  Sender: FDA-Public Use
  Company Number: TPA2010A4453

PATIENT
  Age: 70 Year
  Sex: Female

DRUGS (1)
  1. ULORIC [Suspect]
     Indication: HYPERURICAEMIA

REACTIONS (2)
  - CARDIAC FAILURE CONGESTIVE [None]
  - FLUID RETENTION [None]
